FAERS Safety Report 18048496 (Version 2)
Quarter: 2020Q3

REPORT INFORMATION
  Report Type: Spontaneous
  Country: JP (occurrence: JP)
  Receive Date: 20200721
  Receipt Date: 20200810
  Transmission Date: 20201103
  Serious: Yes (Death, Hospitalization)
  Sender: FDA-Public Use
  Company Number: JP-MACLEODS PHARMACEUTICALS US LTD-MAC2020027327

PATIENT

DRUGS (8)
  1. PERAMIVIR [Suspect]
     Active Substance: PERAMIVIR
     Indication: INFLUENZA
     Dosage: 300 MILLIGRAM, QD
     Route: 042
  2. OSELTAMIVIR 75MG [Suspect]
     Active Substance: OSELTAMIVIR
     Indication: VIRAL UPPER RESPIRATORY TRACT INFECTION
     Dosage: 75 MILLIGRAM, BID
     Route: 065
     Dates: start: 201803, end: 201803
  3. CYCLOSPORINE. [Concomitant]
     Active Substance: CYCLOSPORINE
     Indication: IMMUNOSUPPRESSANT DRUG THERAPY
     Dosage: 75 MILLIGRAM, QD
     Route: 048
  4. OSELTAMIVIR 75MG [Suspect]
     Active Substance: OSELTAMIVIR
     Indication: INFLUENZA
  5. HYDROXYUREA. [Concomitant]
     Active Substance: HYDROXYUREA
     Indication: ACUTE MYELOID LEUKAEMIA
     Dosage: UNK, ON HOSPITAL DAY ONE (ON HD1)
     Route: 048
  6. A?VVV REGIMEN [Concomitant]
     Indication: ACUTE MYELOID LEUKAEMIA
     Dosage: UNK, ON HOSPITAL DAY 6
     Route: 042
  7. PREDNISOLONE. [Concomitant]
     Active Substance: PREDNISOLONE
     Indication: IMMUNOSUPPRESSANT DRUG THERAPY
     Dosage: 5 MILLIGRAM, QD
     Route: 048
  8. PERAMIVIR [Suspect]
     Active Substance: PERAMIVIR
     Indication: VIRAL UPPER RESPIRATORY TRACT INFECTION

REACTIONS (4)
  - Acute myeloid leukaemia [Fatal]
  - Drug resistance [Unknown]
  - Hypotension [Unknown]
  - Drug intolerance [Unknown]

NARRATIVE: CASE EVENT DATE: 201803
